FAERS Safety Report 5117535-9 (Version None)
Quarter: 2006Q3

REPORT INFORMATION
  Report Type: 
  Country: None (occurrence: None)
  Receive Date: 20060929
  Receipt Date: 20060606
  Transmission Date: 20061208
  Serious: Yes (Other)
  Sender: FDA-Public Use
  Company Number: US-ROCHE-451229

PATIENT
  Age: 32 Year
  Sex: Female
  Weight: 56.7 kg

DRUGS (2)
  1. ACCUTANE [Suspect]
     Indication: ACNE
     Route: 048
     Dates: start: 19961001, end: 19970321
  2. ACCUTANE [Suspect]
     Route: 048
     Dates: start: 19970527, end: 19970928

REACTIONS (7)
  - CONSTIPATION [None]
  - DIARRHOEA [None]
  - HEADACHE [None]
  - MICTURITION URGENCY [None]
  - NO ADVERSE EFFECT [None]
  - PREGNANCY [None]
  - RED BLOOD CELL COUNT DECREASED [None]
